FAERS Safety Report 15886544 (Version 3)
Quarter: 2019Q4

REPORT INFORMATION
  Report Type: Report from Study
  Country: US (occurrence: US)
  Receive Date: 20190129
  Receipt Date: 20191008
  Transmission Date: 20200122
  Serious: Yes (Hospitalization)
  Sender: FDA-Public Use
  Company Number: US-ACTELION-A-US2016-138102

PATIENT
  Age: 92 Year
  Sex: Female
  Weight: 70.3 kg

DRUGS (2)
  1. OPSUMIT [Suspect]
     Active Substance: MACITENTAN
     Indication: PULMONARY HYPERTENSION
     Dosage: 10 MG, QD
     Route: 048
     Dates: start: 20160527
  2. ELIQUIS [Concomitant]
     Active Substance: APIXABAN

REACTIONS (8)
  - Herpes virus infection [Unknown]
  - Product dose omission [Unknown]
  - Abdominal discomfort [Unknown]
  - Hospitalisation [Unknown]
  - Weight increased [Unknown]
  - Dyspnoea [Unknown]
  - Gingivitis [Unknown]
  - Infected bite [Unknown]

NARRATIVE: CASE EVENT DATE: 201909
